FAERS Safety Report 8722616 (Version 3)
Quarter: 2012Q4

REPORT INFORMATION
  Report Type: 
  Country: JP (occurrence: JP)
  Receive Date: 20120814
  Receipt Date: 20121207
  Transmission Date: 20130627
  Serious: Yes (Other)
  Sender: FDA-Public Use
  Company Number: JP-009507513-1208JPN005638

PATIENT
  Age: 56 Year
  Sex: Male
  Weight: 59 kg

DRUGS (17)
  1. PEGINTRON [Suspect]
     Indication: HEPATITIS C
     Dosage: 1.5 Microgram per kilogram, qw
     Route: 058
     Dates: start: 20120409, end: 20120514
  2. PEGINTRON [Suspect]
     Dosage: 1.1 Microgram per kilogram, qw
     Route: 058
     Dates: start: 20120521, end: 20120604
  3. REBETOL [Suspect]
     Indication: HEPATITIS C
     Dosage: 600 mg, qd
     Route: 048
     Dates: start: 20120409, end: 20120425
  4. REBETOL [Suspect]
     Dosage: 400 mg, qd
     Route: 048
     Dates: start: 20120426, end: 20120527
  5. REBETOL [Suspect]
     Dosage: UNK
     Route: 048
     Dates: start: 20120528, end: 20120611
  6. TELAVIC [Suspect]
     Indication: HEPATITIS C
     Dosage: 1500 mg, qd
     Route: 048
     Dates: start: 20120409, end: 20120521
  7. TELAVIC [Suspect]
     Dosage: 1500 mg, qg
     Route: 048
     Dates: start: 20120411, end: 20120521
  8. RINDERON-V [Concomitant]
     Indication: RASH
     Dosage: proper quantity/day
     Route: 061
     Dates: start: 20120413, end: 20120506
  9. DERMOVATE [Concomitant]
     Indication: RASH
     Dosage: proper quantity/day
     Route: 051
     Dates: start: 20120507, end: 20120701
  10. ALLEGRA [Concomitant]
     Indication: RASH
     Dosage: 120 mg, qd
     Route: 048
     Dates: start: 20120507, end: 20120513
  11. ALLEGRA [Concomitant]
     Dosage: 240 mg, qd
     Route: 048
     Dates: start: 20120514, end: 20120701
  12. XYZAL [Concomitant]
     Indication: RASH
     Dosage: 5 mg, qd
     Route: 048
     Dates: start: 20120514, end: 20120701
  13. DIFLAL [Concomitant]
     Dosage: Daily dosage unknown
     Route: 061
     Dates: start: 20120521, end: 20120701
  14. MYSLEE [Concomitant]
     Indication: INSOMNIA
     Dosage: 10 mg, prn
     Route: 048
     Dates: start: 20120521
  15. NAUZELIN [Concomitant]
     Indication: NAUSEA
     Dosage: As needed 60mg/day.
     Route: 054
     Dates: start: 20120529, end: 20120611
  16. ALOSITOL [Concomitant]
     Indication: HYPERURICAEMIA
     Dosage: 200 mg, qd
     Route: 048
  17. DEPAS [Concomitant]
     Indication: DEPRESSION
     Dosage: 1 mg, qd
     Route: 048

REACTIONS (1)
  - Retinopathy [Recovering/Resolving]
